FAERS Safety Report 8011002-0 (Version None)
Quarter: 2011Q4

REPORT INFORMATION
  Report Type: 
  Country: None (occurrence: None)
  Receive Date: 20111228
  Receipt Date: 20111213
  Transmission Date: 20120403
  Serious: Yes (Death, Hospitalization)
  Sender: FDA-Public Use
  Company Number: JP-ROCHE-1014898

PATIENT
  Age: 76 Year
  Sex: Male

DRUGS (5)
  1. XELODA [Suspect]
     Indication: GASTRIC CANCER RECURRENT
     Dosage: DOSAGE IS UNCERTAIN.
     Route: 048
  2. XELODA [Suspect]
     Dosage: DOSAGE IS UNCERTAIN.
     Route: 048
  3. HERCEPTIN [Concomitant]
     Route: 041
  4. HERCEPTIN [Suspect]
     Indication: GASTRIC CANCER RECURRENT
  5. CISPLATIN [Concomitant]
     Route: 041

REACTIONS (4)
  - NEUTROPHIL COUNT DECREASED [None]
  - DECREASED APPETITE [None]
  - CANCER PAIN [None]
  - DISEASE PROGRESSION [None]
